FAERS Safety Report 14364561 (Version 2)
Quarter: 2018Q1

REPORT INFORMATION
  Report Type: Report from Study
  Country: None (occurrence: CA)
  Receive Date: 20180108
  Receipt Date: 20180212
  Transmission Date: 20180509
  Serious: Yes (Other)
  Sender: FDA-Public Use
  Company Number: CA-ABBVIE-18K-028-2214133-00

PATIENT
  Age: 13 Year
  Sex: Male
  Weight: 55 kg

DRUGS (1)
  1. HUMIRA [Suspect]
     Active Substance: ADALIMUMAB
     Indication: CROHN^S DISEASE
     Route: 058
     Dates: start: 20170323, end: 20170530

REACTIONS (1)
  - Osteosarcoma [Recovered/Resolved]

NARRATIVE: CASE EVENT DATE: 20170530
